FAERS Safety Report 5723199-3 (Version None)
Quarter: 2008Q2

REPORT INFORMATION
  Report Type: 
  Country: None (occurrence: None)
  Receive Date: 20080430
  Receipt Date: 20080311
  Transmission Date: 20081010
  Serious: No
  Sender: FDA-Public Use
  Company Number: US-BAUSCH-2008BL001071

PATIENT
  Sex: Female

DRUGS (1)
  1. CYCLOPENTOLATE HYDROCHLORIDE OPHTHALMIC SOLUTION USP 1% [Suspect]
     Indication: OPHTHALMOLOGICAL EXAMINATION
     Route: 047
     Dates: start: 20080226, end: 20080226

REACTIONS (2)
  - DRUG EFFECT PROLONGED [None]
  - MEDICATION ERROR [None]
